FAERS Safety Report 23886303 (Version 1)
Quarter: 2024Q2

REPORT INFORMATION
  Report Type: Spontaneous
  Country: US (occurrence: US)
  Receive Date: 20240522
  Receipt Date: 20240522
  Transmission Date: 20240716
  Serious: Yes (Disabling, Other)
  Sender: FDA-Public Use
  Company Number: US-NOVOPROD-1211230

PATIENT
  Age: 62 Year
  Sex: Male

DRUGS (1)
  1. LEVEMIR [Suspect]
     Active Substance: INSULIN DETEMIR
     Indication: Diabetes mellitus
     Dosage: 15 IU (2 TIMES PER DAY)
     Route: 058

REACTIONS (5)
  - Lower limb fracture [Not Recovered/Not Resolved]
  - Cataract operation [Unknown]
  - Cerebrovascular accident [Recovering/Resolving]
  - Coronary artery bypass [Unknown]
  - Hip arthroplasty [Unknown]

NARRATIVE: CASE EVENT DATE: 20160101
